FAERS Safety Report 9478743 (Version 1)
Quarter: 2013Q3

REPORT INFORMATION
  Report Type: Spontaneous
  Country: GB (occurrence: GB)
  Receive Date: 20130827
  Receipt Date: 20130827
  Transmission Date: 20140515
  Serious: Yes (Hospitalization)
  Sender: FDA-Public Use
  Company Number: GB-UCBSA-095845

PATIENT
  Age: 85 Year
  Sex: Male
  Weight: 85.8 kg

DRUGS (28)
  1. CO-CODAMOL [Suspect]
  2. CARBOCISTEINE [Concomitant]
     Dates: start: 20130419
  3. CO-AMOXICLAV [Concomitant]
     Dates: start: 20130509, end: 20130516
  4. CO-AMOXICLAV [Concomitant]
     Dates: start: 20130610, end: 20130617
  5. CYCLIZINE [Concomitant]
     Dates: start: 20130727
  6. DIPROBASE [Concomitant]
     Dates: start: 20130419
  7. FLUCLOXACILLIN [Concomitant]
     Dates: start: 20130719, end: 20130726
  8. FOLIC ACID [Concomitant]
     Dates: start: 20130508
  9. FUROSEMIDE [Concomitant]
     Dates: start: 20130419
  10. GLICLAZIDE [Concomitant]
     Dates: start: 20130419
  11. IPRATROPIUM BROMIDE [Concomitant]
     Dates: start: 20130419
  12. MACROGOL [Concomitant]
     Dates: start: 20130726
  13. METFORMIN [Concomitant]
     Dates: start: 20130419
  14. MOMETASONE [Concomitant]
     Dates: start: 20130419
  15. OLIVE OIL [Concomitant]
     Dates: start: 20130718, end: 20130725
  16. PARACETAMOL [Concomitant]
     Dates: start: 20130419, end: 20130725
  17. PIROXICAM [Concomitant]
     Dates: start: 20130419
  18. PREDNISOLONE [Concomitant]
     Dates: start: 20130610, end: 20130617
  19. RANITIDINE [Concomitant]
     Dates: start: 20130419
  20. SALAMOL [Concomitant]
     Dates: start: 20130517, end: 20130522
  21. SALAMOL [Concomitant]
     Dates: start: 20130618, end: 20130623
  22. SALAMOL [Concomitant]
     Dates: start: 20130711, end: 20130716
  23. SALAMOL [Concomitant]
     Dates: start: 20130718
  24. SALBUTAMOL [Concomitant]
     Dates: start: 20130419
  25. SENNA [Concomitant]
     Dates: start: 20130419
  26. SERETIDE [Concomitant]
     Dates: start: 20130419
  27. SIMVASTATIN [Concomitant]
     Dates: start: 20130419
  28. TIOTROPIUM [Concomitant]

REACTIONS (4)
  - Agitation [Recovering/Resolving]
  - Drug hypersensitivity [Recovering/Resolving]
  - Toxicity to various agents [Recovering/Resolving]
  - Sedation [Recovering/Resolving]
